FAERS Safety Report 12726663 (Version 2)
Quarter: 2016Q3

REPORT INFORMATION
  Report Type: Spontaneous
  Country: IL (occurrence: IL)
  Receive Date: 20160908
  Receipt Date: 20160909
  Transmission Date: 20161109
  Serious: Yes (Other)
  Sender: FDA-Public Use
  Company Number: IL-TEVA-688902ACC

PATIENT
  Age: 55 Year
  Sex: Female

DRUGS (2)
  1. LETROZOLE. [Suspect]
     Active Substance: LETROZOLE
     Indication: BREAST CANCER
     Dosage: 2.5 MILLIGRAM DAILY;
     Route: 048
     Dates: start: 2015, end: 2015
  2. LUCRIN [Suspect]
     Active Substance: LEUPROLIDE ACETATE
     Indication: BREAST CANCER
     Dates: start: 2015, end: 2015

REACTIONS (8)
  - Weight decreased [Unknown]
  - Depression [Unknown]
  - Deafness [Recovering/Resolving]
  - Cataract [Not Recovered/Not Resolved]
  - Vertigo [Recovering/Resolving]
  - Tinnitus [Recovering/Resolving]
  - Hyperacusis [Recovering/Resolving]
  - Gingival bleeding [Unknown]

NARRATIVE: CASE EVENT DATE: 2015
